FAERS Safety Report 24305570 (Version 1)
Quarter: 2024Q3

REPORT INFORMATION
  Report Type: Spontaneous
  Country: US (occurrence: US)
  Receive Date: 20240911
  Receipt Date: 20240911
  Transmission Date: 20241017
  Serious: Yes (Other)
  Sender: AMGEN
  Company Number: US-AMGEN-USASP2024176774

PATIENT
  Age: 12 Year
  Sex: Male

DRUGS (2)
  1. NPLATE [Suspect]
     Active Substance: ROMIPLOSTIM
     Indication: Immune thrombocytopenia
     Dosage: (1 OF THE 125 MCG VIAL AND 1 OF THE 500 MCG VIAL, CONCENTRATION 500 MCG/ML)
     Route: 065
     Dates: start: 202112
  2. PROMACTA [Concomitant]
     Active Substance: ELTROMBOPAG OLAMINE
     Dosage: UNK
     Dates: start: 202407

REACTIONS (7)
  - Platelet count decreased [Unknown]
  - Therapeutic product effect variable [Unknown]
  - Therapy change [Unknown]
  - Product preparation issue [Unknown]
  - Nasopharyngitis [Unknown]
  - Contusion [Unknown]
  - Headache [Unknown]

NARRATIVE: CASE EVENT DATE: 20240101
